FAERS Safety Report 7341860 (Version 7)
Quarter: 2013Q1

REPORT INFORMATION
  Report Type: Spontaneous
  Country: US (occurrence: US)
  Receive Date: 20100402
  Receipt Date: 20130109
  Transmission Date: 20140127
  Serious: Yes (Hospitalization)
  Sender: FDA-Public Use
  Company Number: US-BIOGENIDEC-2010BI010294

PATIENT
  Age: 46 Year
  Sex: Female

DRUGS (2)
  1. AVONEX [Suspect]
     Indication: MULTIPLE SCLEROSIS
     Route: 030
     Dates: start: 20020430, end: 200308
  2. AVONEX [Suspect]
     Indication: MULTIPLE SCLEROSIS
     Route: 030
     Dates: start: 200308

REACTIONS (8)
  - Pulmonary fibrosis [Unknown]
  - Intracardiac thrombus [Unknown]
  - Staphylococcal infection [Unknown]
  - Pneumonia [Not Recovered/Not Resolved]
  - Coma [Recovered/Resolved]
  - Emphysema [Recovered/Resolved]
  - Chronic obstructive pulmonary disease [Recovered/Resolved]
  - Memory impairment [Not Recovered/Not Resolved]
